FAERS Safety Report 21996538 (Version 1)
Quarter: 2023Q1

REPORT INFORMATION
  Report Type: Report from Study
  Country: GB (occurrence: GB)
  Receive Date: 20230215
  Receipt Date: 20230215
  Transmission Date: 20230418
  Serious: Yes (Other)
  Sender: FDA-Public Use
  Company Number: GB-MYLANLABS-2023M1015285

PATIENT
  Sex: Female

DRUGS (1)
  1. GLATIRAMER ACETATE [Suspect]
     Active Substance: GLATIRAMER ACETATE
     Indication: Multiple sclerosis
     Dosage: 40 MILLIGRAM, 3XW
     Route: 058

REACTIONS (3)
  - Multiple sclerosis [Unknown]
  - Device breakage [Unknown]
  - Product dose omission issue [Unknown]
